FAERS Safety Report 14134808 (Version 2)
Quarter: 2018Q1

REPORT INFORMATION
  Report Type: Spontaneous
  Country: US (occurrence: US)
  Receive Date: 20171026
  Receipt Date: 20180125
  Transmission Date: 20180508
  Serious: No
  Sender: FDA-Public Use
  Company Number: US-AMGEN-USASP2017136064

PATIENT
  Age: 75 Year
  Sex: Male

DRUGS (1)
  1. REPATHA [Suspect]
     Active Substance: EVOLOCUMAB
     Indication: ARTERITIS
     Dosage: UNK UNK, Q2WK
     Route: 065
     Dates: start: 201702

REACTIONS (3)
  - Asthenia [Unknown]
  - Muscle disorder [Unknown]
  - Off label use [Unknown]

NARRATIVE: CASE EVENT DATE: 2017
